FAERS Safety Report 9727504 (Version 1)
Quarter: 2013Q4

REPORT INFORMATION
  Report Type: Spontaneous
  Country: IT (occurrence: None)
  Receive Date: 20131127
  Receipt Date: 20131127
  Transmission Date: 20140711
  Serious: Yes (Hospitalization)
  Sender: FDA-Public Use
  Company Number: SYM-2013-13064

PATIENT
  Age: 42 Year
  Sex: Female

DRUGS (2)
  1. WELLBUTRIN (BUPROPION HYDROCHLORIDE) [Suspect]
     Indication: INTENTIONAL SELF-INJURY
     Dates: start: 20130106
  2. ALPRAZOLAM (ALPRAZOLAM) (ALPRAZOLAM) [Suspect]
     Indication: INTENTIONAL SELF-INJURY
     Dates: start: 20130106

REACTIONS (2)
  - Drug abuse [None]
  - Intentional self-injury [None]
